FAERS Safety Report 20576493 (Version 1)
Quarter: 2022Q1

REPORT INFORMATION
  Report Type: Spontaneous
  Country: US (occurrence: US)
  Receive Date: 20220310
  Receipt Date: 20220310
  Transmission Date: 20220423
  Serious: Yes (Hospitalization)
  Sender: FDA-Public Use
  Company Number: US-STRIDES ARCOLAB LIMITED-2021SP031546

PATIENT
  Age: 7 Year
  Sex: Male

DRUGS (2)
  1. PREDNISOLONE [Suspect]
     Active Substance: PREDNISOLONE
     Indication: Dermatitis contact
     Dosage: 20 MILLIGRAM QD (0.8MG/KG)
     Route: 048
     Dates: start: 2021, end: 2021
  2. ACYCLOVIR [Concomitant]
     Active Substance: ACYCLOVIR
     Indication: Meningitis viral
     Dosage: UNK
     Route: 042
     Dates: start: 2021, end: 2021

REACTIONS (1)
  - Herpes zoster reactivation [Recovered/Resolved]

NARRATIVE: CASE EVENT DATE: 20210101
